FAERS Safety Report 11649807 (Version 2)
Quarter: 2015Q4

REPORT INFORMATION
  Report Type: Report from Study
  Country: JP (occurrence: JP)
  Receive Date: 20151021
  Receipt Date: 20151117
  Transmission Date: 20160304
  Serious: Yes (Hospitalization)
  Sender: FDA-Public Use
  Company Number: JP-PFIZER INC-2015326567

PATIENT
  Age: 72 Year
  Sex: Female
  Weight: 159.6 kg

DRUGS (25)
  1. PREDNISOLONE. [Concomitant]
     Active Substance: PREDNISOLONE
     Dosage: 8 MG, DAILY
     Dates: start: 20150126, end: 20150303
  2. SOL-MELCORT [Concomitant]
     Active Substance: METHYLPREDNISOLONE SODIUM SUCCINATE
     Dosage: UNK
     Dates: start: 20150519
  3. ADALAT [Concomitant]
     Active Substance: NIFEDIPINE
     Route: 048
  4. BIO-THREE [Concomitant]
     Active Substance: HERBALS
     Route: 048
  5. FOSAMAC [Concomitant]
     Active Substance: ALENDRONATE SODIUM
     Route: 048
  6. XELJANZ [Suspect]
     Active Substance: TOFACITINIB CITRATE
     Dosage: 5 MG, 2X/DAY
     Route: 048
     Dates: start: 20150901, end: 20150923
  7. PREDONINE [Concomitant]
     Active Substance: PREDNISOLONE\PREDNISOLONE ACETATE\PREDNISOLONE SODIUM SUCCINATE
     Dosage: 10 MG, DAILY
     Dates: end: 20150104
  8. BLOPRESS [Concomitant]
     Active Substance: CANDESARTAN CILEXETIL
     Route: 048
  9. GLIMICRON [Concomitant]
     Active Substance: GLICLAZIDE
     Route: 048
  10. MEVALOTIN [Concomitant]
     Active Substance: PRAVASTATIN SODIUM
     Dosage: UNK
     Route: 048
     Dates: start: 20150401
  11. PREDNISOLONE. [Concomitant]
     Active Substance: PREDNISOLONE
     Dosage: 6 MG, DAILY
     Dates: start: 20150402, end: 20150415
  12. TRAZENTA [Concomitant]
     Active Substance: LINAGLIPTIN
     Route: 048
  13. XELJANZ [Suspect]
     Active Substance: TOFACITINIB CITRATE
     Dosage: 5 MG, 2X/DAY
     Route: 048
     Dates: start: 20150608, end: 20150625
  14. PREDNISOLONE. [Concomitant]
     Active Substance: PREDNISOLONE
     Dosage: 7 MG, DAILY
     Dates: start: 20150304, end: 20150401
  15. PREDNISOLONE. [Concomitant]
     Active Substance: PREDNISOLONE
     Dosage: 5 MG, DAILY
     Dates: start: 20150416
  16. PRAVASTATIN SODIUM. [Concomitant]
     Active Substance: PRAVASTATIN SODIUM
     Route: 048
  17. CELECOX [Concomitant]
     Active Substance: CELECOXIB
     Dosage: UNK
     Route: 048
     Dates: start: 20150520
  18. PREDNISOLONE. [Concomitant]
     Active Substance: PREDNISOLONE
     Dosage: 9 MG, DAILY
     Dates: start: 20150105, end: 20150125
  19. COLCHICINE. [Concomitant]
     Active Substance: COLCHICINE
     Route: 048
  20. CEFAZOLIN [Concomitant]
     Active Substance: CEFAZOLIN
     Dosage: UNK
     Dates: start: 20150519
  21. LOXOPROFEN SODIUM [Concomitant]
     Active Substance: LOXOPROFEN SODIUM
     Dosage: UNK
     Route: 048
     Dates: start: 20150602
  22. XELJANZ [Suspect]
     Active Substance: TOFACITINIB CITRATE
     Indication: RHEUMATOID ARTHRITIS
     Dosage: 5 MG, 2X/DAY
     Route: 048
     Dates: start: 20150218, end: 20150518
  23. FAMOTIDINE. [Concomitant]
     Active Substance: FAMOTIDINE
     Route: 048
  24. VOGLIBOSE [Concomitant]
     Active Substance: VOGLIBOSE
     Route: 048
  25. VANCOMYCIN [Concomitant]
     Active Substance: VANCOMYCIN
     Dosage: UNK
     Dates: start: 20150519

REACTIONS (2)
  - Cholecystitis acute [Recovered/Resolved]
  - Herpes zoster disseminated [Recovered/Resolved]

NARRATIVE: CASE EVENT DATE: 20150920
